FAERS Safety Report 9162145 (Version 1)
Quarter: 2013Q1

REPORT INFORMATION
  Report Type: Spontaneous
  Country: KR (occurrence: None)
  Receive Date: 20130220
  Receipt Date: 20130220
  Transmission Date: 20140127
  Serious: Yes (Hospitalization)
  Sender: FDA-Public Use
  Company Number: FK201300456

PATIENT
  Age: 73 Year
  Sex: Male

DRUGS (2)
  1. CISPLATIN (CISPLATIN) (5 MILLIGRAM) (CISPLATIN) [Suspect]
     Indication: SMALL CELL LUNG CANCER METASTATIC
     Route: 042
  2. IRINOTECAN (IRINOTECAN) [Suspect]
     Indication: SMALL CELL LUNG CANCER METASTATIC
     Route: 042

REACTIONS (4)
  - Abdominal pain [None]
  - Gastrointestinal sounds abnormal [None]
  - Haemoglobin decreased [None]
  - Caecitis [None]
